FAERS Safety Report 8066630-3 (Version None)
Quarter: 2012Q1

REPORT INFORMATION
  Report Type: 
  Country: None (occurrence: None)
  Receive Date: 20120124
  Receipt Date: 20120119
  Transmission Date: 20120608
  Serious: Yes (Other)
  Sender: FDA-Public Use
  Company Number: PHEH2012US001867

PATIENT
  Sex: Male

DRUGS (6)
  1. AZITHROMYCIN [Concomitant]
  2. PULMOZYME [Concomitant]
  3. ALBUTEROL [Concomitant]
  4. TOBI [Suspect]
     Dosage: UNK
     Dates: start: 20110301
  5. TOBI [Suspect]
     Indication: CYSTIC FIBROSIS
     Dosage: 300 MG, BID QO 28 DAYS
  6. SALINE [Concomitant]

REACTIONS (1)
  - STAPHYLOCOCCAL INFECTION [None]
